FAERS Safety Report 9929212 (Version 2)
Quarter: 2014Q3

REPORT INFORMATION
  Report Type: Spontaneous
  Country: CA (occurrence: None)
  Receive Date: 20140224
  Receipt Date: 20140806
  Transmission Date: 20150326
  Serious: Yes (Hospitalization, Other)
  Sender: FDA-Public Use
  Company Number: CA14-110

PATIENT
  Age: 27 Year
  Sex: Female

DRUGS (4)
  1. VITAMIN D [Concomitant]
     Active Substance: CHOLECALCIFEROL
  2. DICLECTIN [Suspect]
     Active Substance: DOXYLAMINE\PYRIDOXINE
  3. REMICADE [Suspect]
     Active Substance: INFLIXIMAB
     Indication: CROHN^S DISEASE
     Dosage: 300 MG ONCE EVERY 8 WEEKS, DURATION: ONGOING?
     Route: 042
     Dates: start: 20111210
  4. ZOLOFT [Suspect]
     Active Substance: SERTRALINE HYDROCHLORIDE

REACTIONS (3)
  - Infected cyst [None]
  - Caesarean section [None]
  - Maternal exposure during pregnancy [None]

NARRATIVE: CASE EVENT DATE: 2013
